FAERS Safety Report 10196067 (Version 1)
Quarter: 2014Q2

REPORT INFORMATION
  Report Type: Spontaneous
  Country: FR (occurrence: None)
  Receive Date: 20140521
  Receipt Date: 20140521
  Transmission Date: 20141212
  Serious: Yes (Disabling)
  Sender: FDA-Public Use
  Company Number: KR-20140014

PATIENT
  Age: 55 Year
  Sex: Male

DRUGS (3)
  1. LIPIODOL [Suspect]
     Indication: THERAPEUTIC EMBOLISATION
     Route: 013
  2. ADRIAMYCIN [Concomitant]
  3. GELFOAM (ABSORBABLE GELATIN SPONGE)  (ABSORBABLE GELATIN SPONGE) [Concomitant]

REACTIONS (2)
  - Spinal cord injury thoracic [None]
  - Off label use [None]
